FAERS Safety Report 8219076-9 (Version None)
Quarter: 2012Q1

REPORT INFORMATION
  Report Type: 
  Country: None (occurrence: None)
  Receive Date: 20120307
  Receipt Date: 20090619
  Transmission Date: 20120608
  Serious: Yes (Hospitalization)
  Sender: FDA-Public Use
  Company Number: PHEH2009US06546

PATIENT
  Sex: Female

DRUGS (1)
  1. AFINITOR [Suspect]
     Indication: HODGKIN'S DISEASE
     Dosage: ORAL
     Route: 048

REACTIONS (3)
  - SWELLING [None]
  - ANGIOEDEMA [None]
  - HYPERSENSITIVITY [None]
